FAERS Safety Report 23533557 (Version 1)
Quarter: 2024Q1

REPORT INFORMATION
  Report Type: Spontaneous
  Country: ES (occurrence: ES)
  Receive Date: 20240216
  Receipt Date: 20240216
  Transmission Date: 20240410
  Serious: Yes (Death)
  Sender: FDA-Public Use
  Company Number: None

PATIENT
  Age: 56 Year
  Sex: Female

DRUGS (1)
  1. BEVACIZUMAB [Suspect]
     Active Substance: BEVACIZUMAB
     Indication: Cervix cancer metastatic
     Dosage: 15 MG/KG (FREQ:2 WK;)
     Route: 042
     Dates: start: 20230803, end: 20230831

REACTIONS (1)
  - Oesophagopleural fistula [Fatal]

NARRATIVE: CASE EVENT DATE: 20231103
